FAERS Safety Report 21911345 (Version 1)
Quarter: 2023Q1

REPORT INFORMATION
  Report Type: Spontaneous
  Country: US (occurrence: US)
  Receive Date: 20230125
  Receipt Date: 20230125
  Transmission Date: 20230418
  Serious: Yes (Hospitalization)
  Sender: FDA-Public Use
  Company Number: US-GE HEALTHCARE-2023CSU000359

PATIENT
  Age: 48 Year
  Sex: Female

DRUGS (3)
  1. OMNIPAQUE [Suspect]
     Active Substance: IOHEXOL
     Indication: Computerised tomogram head
     Dosage: 53 ML, VIA POWER INJECTOR, ONCE
     Route: 042
  2. OMNIPAQUE [Suspect]
     Active Substance: IOHEXOL
     Indication: Tooth abscess
  3. OMNIPAQUE [Suspect]
     Active Substance: IOHEXOL
     Indication: Fistula

REACTIONS (2)
  - Compartment syndrome [Recovered/Resolved]
  - Infusion site extravasation [Recovered/Resolved]
